FAERS Safety Report 20127358 (Version 1)
Quarter: 2021Q4

REPORT INFORMATION
  Report Type: Spontaneous
  Country: ES (occurrence: ES)
  Receive Date: 20211129
  Receipt Date: 20211129
  Transmission Date: 20220304
  Serious: Yes (Hospitalization, Other)
  Sender: FDA-Public Use
  Company Number: ES-AMAROX PHARMA GMBH-AMR2021ES01166

PATIENT
  Age: 67 Year
  Sex: Male

DRUGS (6)
  1. FLUCONAZOLE [Suspect]
     Active Substance: FLUCONAZOLE
     Indication: Cryptococcosis
     Dosage: UNK
  2. FLUCONAZOLE [Suspect]
     Active Substance: FLUCONAZOLE
     Dosage: 400 MILLIGRAM, QD (400 MG, 1X/DAY)
     Route: 065
     Dates: start: 20170801
  3. FLUCONAZOLE [Suspect]
     Active Substance: FLUCONAZOLE
     Dosage: 800 MILLIGRAM, QD (800 MG, 1X/DAY, FOR FIRST TWO MONTHS)
     Route: 065
     Dates: start: 20170801
  4. AMPHOTERICIN B [Suspect]
     Active Substance: AMPHOTERICIN B
     Indication: Cryptococcosis
     Dosage: 4 MILLIGRAM/KILOGRAM, QD (4 MG/KG, 1X/DAY)
     Route: 065
  5. FLUCYTOSINE [Suspect]
     Active Substance: FLUCYTOSINE
     Indication: Cryptococcosis
     Dosage: 100 MILLIGRAM/KILOGRAM, QD (100 MG/KG, 1X/DAY)
     Route: 065
  6. PREDNISONE [Concomitant]
     Active Substance: PREDNISONE
     Indication: Immune reconstitution inflammatory syndrome
     Dosage: 1 MILLIGRAM/KILOGRAM, QD (1 MG/KG, 1X/DAY (50 MG/D) FOR 1 MONTH)

REACTIONS (1)
  - Drug ineffective [Unknown]
